FAERS Safety Report 14656190 (Version 1)
Quarter: 2018Q1

REPORT INFORMATION
  Report Type: Spontaneous
  Country: FR (occurrence: FR)
  Receive Date: 20180319
  Receipt Date: 20180319
  Transmission Date: 20180509
  Serious: Yes (Other)
  Sender: FDA-Public Use
  Company Number: FR-TEVA-2018-FR-869032

PATIENT
  Sex: Female
  Weight: 150 kg

DRUGS (12)
  1. UVEDOSE [Suspect]
     Active Substance: CHOLECALCIFEROL
     Route: 065
  2. LEVOTHYROX 175 MICROGRAMMES, COMPRIM? S?CABLE [Suspect]
     Active Substance: LEVOTHYROXINE SODIUM
     Indication: HYPOTHYROIDISM
     Route: 048
  3. AMLOR 10 MG, G?LULE [Suspect]
     Active Substance: AMLODIPINE BESYLATE
     Route: 065
  4. ENDOTELON [Suspect]
     Active Substance: HERBALS
     Dosage: 2 ? 3 CP/J
     Route: 065
  5. SEROPLEX 10 MG, COMPRIM? PELLICUL? S?CABLE [Suspect]
     Active Substance: ESCITALOPRAM OXALATE
     Route: 065
  6. VOLTARENE (DICLOFENAC SODIUM) [Suspect]
     Active Substance: DICLOFENAC SODIUM
     Dosage: 2X/SEMAINE
     Route: 065
  7. COTAREG 160 MG/25 MG, COMPRIM? PELLICUL? [Suspect]
     Active Substance: HYDROCHLOROTHIAZIDE\VALSARTAN
     Route: 065
  8. ATENOLOL. [Suspect]
     Active Substance: ATENOLOL
     Route: 065
  9. ZYLORIC 200 MG, COMPRIM? [Suspect]
     Active Substance: ALLOPURINOL
     Route: 065
  10. SERESTA 50 MG, COMPRIM? S?CABLE [Suspect]
     Active Substance: OXAZEPAM
     Route: 065
  11. IMOVANE [Suspect]
     Active Substance: ZOPICLONE
     Route: 065
  12. SIMVASTATIN. [Suspect]
     Active Substance: SIMVASTATIN
     Route: 065

REACTIONS (20)
  - Urticaria [Not Recovered/Not Resolved]
  - Arthralgia [Not Recovered/Not Resolved]
  - Feeling jittery [Not Recovered/Not Resolved]
  - Paraesthesia [Not Recovered/Not Resolved]
  - Feeling hot [Not Recovered/Not Resolved]
  - Vision blurred [Not Recovered/Not Resolved]
  - Amnesia [Not Recovered/Not Resolved]
  - Blood thyroid stimulating hormone [Not Recovered/Not Resolved]
  - Dry skin [Not Recovered/Not Resolved]
  - Muscle spasms [Not Recovered/Not Resolved]
  - Insomnia [Not Recovered/Not Resolved]
  - Diarrhoea [Not Recovered/Not Resolved]
  - Fatigue [Recovering/Resolving]
  - Myalgia [Not Recovered/Not Resolved]
  - Nasal dryness [Not Recovered/Not Resolved]
  - Abdominal pain [Not Recovered/Not Resolved]
  - Eye burns [Not Recovered/Not Resolved]
  - Irritability [Not Recovered/Not Resolved]
  - Vertigo [Recovering/Resolving]
  - Pruritus [Not Recovered/Not Resolved]
